FAERS Safety Report 7936998-4 (Version None)
Quarter: 2011Q4

REPORT INFORMATION
  Report Type: 
  Country: None (occurrence: None)
  Receive Date: 20111123
  Receipt Date: 20111117
  Transmission Date: 20120403
  Serious: Yes (Death, Hospitalization)
  Sender: FDA-Public Use
  Company Number: JP-ROCHE-1005609

PATIENT
  Sex: Female
  Weight: 41 kg

DRUGS (4)
  1. CARBOPLATIN [Suspect]
     Indication: LUNG ADENOCARCINOMA METASTATIC
     Dosage: DOSAGE IS UNCERTAIN.
     Route: 041
     Dates: start: 20110926, end: 20110926
  2. CODEINE PHOSPHATE [Concomitant]
     Indication: COUGH
     Route: 048
     Dates: start: 20110817
  3. ALIMTA [Suspect]
     Indication: LUNG ADENOCARCINOMA METASTATIC
     Dosage: DOSAGE IS UNCERTAIN.
     Route: 041
     Dates: start: 20110926, end: 20110926
  4. AVASTIN [Suspect]
     Indication: LUNG ADENOCARCINOMA METASTATIC
     Route: 041
     Dates: start: 20110926, end: 20110926

REACTIONS (5)
  - EPISTAXIS [None]
  - HAEMOPTYSIS [None]
  - C-REACTIVE PROTEIN INCREASED [None]
  - PYREXIA [None]
  - PLATELET COUNT DECREASED [None]
